FAERS Safety Report 11282137 (Version 1)
Quarter: 2015Q3

REPORT INFORMATION
  Report Type: Spontaneous
  Country: CA (occurrence: CA)
  Receive Date: 20150720
  Receipt Date: 20150720
  Transmission Date: 20151125
  Serious: Yes (Disabling, Other)
  Sender: FDA-Public Use
  Company Number: CA-TAKEDA-2015TJP012920

PATIENT
  Age: 33 Year
  Sex: Female

DRUGS (7)
  1. TRINTELLIX [Suspect]
     Active Substance: VORTIOXETINE
     Indication: DEPRESSION
     Dosage: 10 MG, QD
     Route: 048
     Dates: start: 20150313
  2. ABILIFY [Suspect]
     Active Substance: ARIPIPRAZOLE
     Indication: PRODUCT USED FOR UNKNOWN INDICATION
     Dosage: 2 MG, QD
     Route: 048
     Dates: start: 2015, end: 2015
  3. CYMBALTA [Suspect]
     Active Substance: DULOXETINE HYDROCHLORIDE
     Dosage: UNK UNK, QD
     Route: 048
     Dates: start: 20150608
  4. ENDOCET [Concomitant]
     Active Substance: ACETAMINOPHEN\OXYCODONE HYDROCHLORIDE
     Indication: BACK INJURY
     Dosage: 325.5 MG, UNK
     Route: 048
     Dates: start: 20110314
  5. TRINTELLIX [Suspect]
     Active Substance: VORTIOXETINE
     Dosage: 20 MG, QD
     Route: 048
     Dates: end: 20150608
  6. TOPAMAX [Suspect]
     Active Substance: TOPIRAMATE
     Indication: DEPRESSION
     Dosage: 25 MG, QD
     Route: 048
  7. CYMBALTA [Suspect]
     Active Substance: DULOXETINE HYDROCHLORIDE
     Indication: DEPRESSION
     Dosage: 60 MG, QD
     Route: 048
     Dates: end: 20150313

REACTIONS (4)
  - Suicidal ideation [Recovered/Resolved]
  - Anxiety [Recovered/Resolved]
  - Depression [Recovered/Resolved]
  - Nausea [Recovered/Resolved]

NARRATIVE: CASE EVENT DATE: 20150313
